FAERS Safety Report 9522916 (Version 8)
Quarter: 2014Q1

REPORT INFORMATION
  Report Type: Report from Study
  Country: JP (occurrence: JP)
  Receive Date: 20130913
  Receipt Date: 20140103
  Transmission Date: 20141002
  Serious: Yes (Hospitalization)
  Sender: FDA-Public Use
  Company Number: JP-009507513-1009USA05347

PATIENT
  Age: 67 Year
  Sex: Female
  Weight: 59.9 kg

DRUGS (51)
  1. VORINOSTAT [Suspect]
     Indication: B-CELL LYMPHOMA
     Dosage: CYCLE 1-4: 200 MG, BID ON DAYS 1-14 FOLLOWED BY 7 DAYS REST
     Route: 048
     Dates: start: 20090526, end: 20090810
  2. VORINOSTAT [Suspect]
     Dosage: CYCLE 5: 200 MG, BID
     Route: 048
     Dates: start: 20090818, end: 20090822
  3. VORINOSTAT [Suspect]
     Dosage: CYCLE 5: 100 MG, BID
     Route: 048
     Dates: start: 20090823, end: 20090823
  4. VORINOSTAT [Suspect]
     Dosage: CYCLE 5: 200 MG, BID
     Route: 048
     Dates: start: 20090824, end: 20090824
  5. VORINOSTAT [Suspect]
     Dosage: CYCLE 5: 100 MG BID
     Route: 048
     Dates: start: 20090825, end: 20090826
  6. VORINOSTAT [Suspect]
     Dosage: CYCLE 6-9: 200 MG BID
     Route: 048
     Dates: start: 20090911, end: 20091130
  7. VORINOSTAT [Suspect]
     Dosage: CYCLE 10-13: 200 MG BID
     Route: 048
     Dates: start: 20091208, end: 20100301
  8. VORINOSTAT [Suspect]
     Dosage: CYCLE 14: 200 MG BID
     Route: 048
     Dates: start: 20100309, end: 20100318
  9. VORINOSTAT [Suspect]
     Dosage: CYCLE 14: 100 MG BID
     Route: 048
     Dates: start: 20100319, end: 20100319
  10. VORINOSTAT [Suspect]
     Dosage: CYCLE 14: 200 MG BID
     Route: 048
     Dates: start: 20100320, end: 20100322
  11. VORINOSTAT [Suspect]
     Dosage: CYCLE 15-16: 200 MG BID
     Route: 048
     Dates: start: 20100330, end: 20100501
  12. VORINOSTAT [Suspect]
     Dosage: CYCLE 16: 200 MG BID
     Route: 048
     Dates: start: 20100504, end: 20100510
  13. VORINOSTAT [Suspect]
     Dosage: CYCLE 17-18: 200 MG BID
     Route: 048
     Dates: start: 20100518, end: 20100624
  14. VORINOSTAT [Suspect]
     Dosage: CYCLE 19: 100 MG BID
     Route: 048
     Dates: start: 20100706, end: 20100706
  15. VORINOSTAT [Suspect]
     Dosage: CYCLE 19: 100 MG DAILY
     Route: 048
     Dates: start: 20100707, end: 20100707
  16. VORINOSTAT [Suspect]
     Dosage: CYCLE 19: 200 MG + 100 MG DAILY
     Route: 048
     Dates: start: 20100708, end: 20100712
  17. VORINOSTAT [Suspect]
     Dosage: CYCLE 19: 100 MG BID
     Route: 048
     Dates: start: 20100713, end: 20100713
  18. VORINOSTAT [Suspect]
     Dosage: CYCLE 19: 200 MG + 100 MG DAILY
     Route: 048
     Dates: start: 20100714, end: 20100719
  19. VORINOSTAT [Suspect]
     Dosage: CYCLE 20: 200 MG + 100 MG DAILY
     Route: 048
     Dates: start: 20100727, end: 20100803
  20. VORINOSTAT [Suspect]
     Dosage: CYCLE 20: 100 MG DAILY
     Route: 048
     Dates: start: 20100804, end: 20100804
  21. VORINOSTAT [Suspect]
     Dosage: CYCLE 20: 200 MG + 100 MG DAILY
     Route: 048
     Dates: start: 20100807, end: 20100809
  22. VORINOSTAT [Suspect]
     Dosage: CYCLE 21: 200 MG + 100 MG DAILY
     Route: 048
     Dates: start: 20100817, end: 20100830
  23. VORINOSTAT [Suspect]
     Dosage: CYCLE 22: 200 MG + 100 MG DAILY
     Route: 048
     Dates: start: 20100908, end: 20100917
  24. VORINOSTAT [Suspect]
     Dosage: CYCLE 22: 200 MG BID
     Route: 048
     Dates: start: 20100918, end: 20100918
  25. VORINOSTAT [Suspect]
     Dosage: CYCLE 22-24: 200 MG + 100 MG DAILY
     Route: 048
     Dates: start: 20100919, end: 20101101
  26. VORINOSTAT [Suspect]
     Dosage: CYCLE 25-26: 200 MG +100 MG DAILY
     Route: 048
     Dates: start: 20101110, end: 20101211
  27. VORINOSTAT [Suspect]
     Dosage: CYCLE 26: 100 MG BID
     Route: 048
     Dates: start: 20101212, end: 20101212
  28. VORINOSTAT [Suspect]
     Dosage: CYCLE 26-27: 200 MG +100 MG DAILY
     Route: 048
     Dates: start: 20101213, end: 20110104
  29. VORINOSTAT [Suspect]
     Dosage: CYCLE 28: 100 MG DAILY
     Route: 048
     Dates: start: 20110112, end: 20110112
  30. VORINOSTAT [Suspect]
     Dosage: CYCLE 28: 200 MG + 100 MG DAILY
     Route: 048
     Dates: start: 20110113, end: 20110119
  31. VORINOSTAT [Suspect]
     Dosage: CYCLE 28: 100 MG BID
     Route: 048
     Dates: start: 20110120, end: 20110120
  32. VORINOSTAT [Suspect]
     Dosage: CYCLE 28-31: 200 MG + 100 MG DAILY
     Route: 048
     Dates: start: 20110121, end: 20110411
  33. VORINOSTAT [Suspect]
     Dosage: CYCLE 31: 100 MG BID
     Route: 048
     Dates: start: 20110412, end: 20110412
  34. VORINOSTAT [Suspect]
     Dosage: CYCLE 32: 200 MG + 100 MG DAILY
     Route: 048
     Dates: start: 20110420, end: 20110430
  35. VORINOSTAT [Suspect]
     Dosage: CYCLE 32: 100 MG DAILY
     Route: 048
     Dates: start: 20110501, end: 20110501
  36. VORINOSTAT [Suspect]
     Dosage: CYCLE 33-37: 200 MG + 100 MG DAILY
     Route: 048
     Dates: start: 20110511, end: 20110903
  37. VORINOSTAT [Suspect]
     Dosage: CYCLE 37: 100 MG BID
     Route: 048
     Dates: start: 20110904, end: 20110904
  38. VORINOSTAT [Suspect]
     Dosage: CYCLE 37-38: 300 MG DAILY
     Route: 048
     Dates: start: 20110905, end: 20110929
  39. VORINOSTAT [Suspect]
     Dosage: CYCLE 39-45: 100 MG BID
     Route: 048
     Dates: start: 20111009, end: 20120306
  40. VORINOSTAT [Suspect]
     Dosage: CYCLE 45: 100 MG DAILY
     Route: 048
     Dates: start: 20120307, end: 20120307
  41. VORINOSTAT [Suspect]
     Dosage: CYCLE 45-55: 100 MG BID
     Route: 048
     Dates: start: 20120308, end: 20121009
  42. VORINOSTAT [Suspect]
     Dosage: CYCLE 55: 100 MG DAILY
     Route: 048
     Dates: start: 20121010, end: 20121011
  43. VORINOSTAT [Suspect]
     Dosage: CYCLE 55-61: 100 MG BID
     Route: 048
     Dates: start: 20121012, end: 20130305
  44. VORINOSTAT [Suspect]
     Dosage: CYCLE 61: 100 MG DAILY
     Route: 048
     Dates: start: 20130306, end: 20130307
  45. VORINOSTAT [Suspect]
     Dosage: CYCLE 61-67: 100 MG BID
     Route: 048
     Dates: start: 20130308, end: 20130812
  46. VORINOSTAT [Suspect]
     Dosage: CYCLE 68: 200 MG DAILY
     Route: 048
     Dates: start: 20130825, end: 20130906
  47. VORINOSTAT [Suspect]
     Dosage: CYCLE 69: 100 MG DAILY
     Route: 048
     Dates: start: 20130925
  48. LENDORMIN [Concomitant]
     Indication: INSOMNIA
     Dosage: 0.25 MG TOTAL DAILY DOSE, PRN
     Route: 048
     Dates: start: 200905
  49. DEPAS [Concomitant]
     Dosage: UNK
     Dates: start: 20111031
  50. AMLODIN (AMLODIPINE BESYLATE) [Concomitant]
     Dosage: UNK
     Dates: start: 20130424
  51. SANCOBA [Concomitant]
     Dosage: UNK
     Dates: start: 20130629

REACTIONS (2)
  - Parotitis [Recovered/Resolved]
  - Accidental overdose [Recovered/Resolved]
